FAERS Safety Report 11678305 (Version 3)
Quarter: 2015Q4

REPORT INFORMATION
  Report Type: Report from Study
  Country: AR (occurrence: AR)
  Receive Date: 20151028
  Receipt Date: 20151117
  Transmission Date: 20160304
  Serious: Yes (Life-Threatening, Other)
  Sender: FDA-Public Use
  Company Number: PHHY2015AR138200

PATIENT
  Sex: Male

DRUGS (3)
  1. ULTIBRO BREEZHALER [Suspect]
     Active Substance: GLYCOPYRRONIUM\INDACATEROL
     Indication: CHRONIC OBSTRUCTIVE PULMONARY DISEASE
     Dosage: 10 DF, UNK (10 TABLETS IN 10 DAYS)
     Route: 065
  2. ONBREZ BREEZHALER [Suspect]
     Active Substance: INDACATEROL
     Indication: CHRONIC OBSTRUCTIVE PULMONARY DISEASE
     Dosage: 1 DF, QD (STOPPED 6 MONTHS AGO)
     Route: 065
     Dates: start: 2014
  3. ONBREZ BREEZHALER [Suspect]
     Active Substance: INDACATEROL
     Dosage: 1 DF, QD (STARTED 2 MONTHS AGO)
     Route: 065

REACTIONS (9)
  - Infarction [Not Recovered/Not Resolved]
  - Asthmatic crisis [Unknown]
  - Feeling abnormal [Not Recovered/Not Resolved]
  - Gait disturbance [Not Recovered/Not Resolved]
  - Dyspnoea [Not Recovered/Not Resolved]
  - Malaise [Not Recovered/Not Resolved]
  - Bronchospasm [Not Recovered/Not Resolved]
  - Asphyxia [Not Recovered/Not Resolved]
  - General physical health deterioration [Not Recovered/Not Resolved]
